FAERS Safety Report 5727073-8 (Version None)
Quarter: 2008Q2

REPORT INFORMATION
  Report Type: 
  Country: None (occurrence: None)
  Receive Date: 20080505
  Receipt Date: 20080425
  Transmission Date: 20081010
  Serious: Yes (Hospitalization)
  Sender: FDA-Public Use
  Company Number: JP-JNJFOC-20080407270

PATIENT
  Age: 37 Year

DRUGS (2)
  1. HALOPERIDOL [Suspect]
     Indication: DRUG USE FOR UNKNOWN INDICATION
  2. BIPERIDEN HYDROCHLORIDE TAB [Concomitant]

REACTIONS (2)
  - FATIGUE [None]
  - ILL-DEFINED DISORDER [None]
